FAERS Safety Report 4597696-0 (Version None)
Quarter: 2005Q1

REPORT INFORMATION
  Report Type: 
  Country: None (occurrence: None)
  Receive Date: 20050303
  Receipt Date: 20050224
  Transmission Date: 20050727
  Serious: Yes (Death)
  Sender: FDA-Public Use
  Company Number: IT-ABBOTT-05P-083-0292115-00

PATIENT
  Sex: Male

DRUGS (8)
  1. DEPAKENE [Suspect]
     Indication: BIPOLAR I DISORDER
     Route: 048
     Dates: start: 20041230
  2. DEPAKENE [Suspect]
     Indication: MANIA
  3. OLANZAPINE [Suspect]
     Indication: BIPOLAR I DISORDER
     Route: 048
     Dates: start: 20041223
  4. OLANZAPINE [Suspect]
     Indication: MANIA
  5. LORAZEPAM [Suspect]
     Indication: BIPOLAR I DISORDER
     Route: 040
     Dates: start: 20050107
  6. LORAZEPAM [Suspect]
     Indication: MANIA
  7. POTASSIUM CHLORIDE [Concomitant]
     Indication: DRUG USE FOR UNKNOWN INDICATION
     Route: 048
     Dates: start: 20041223
  8. SENNA LEAF [Concomitant]
     Indication: CONSTIPATION
     Route: 048
     Dates: start: 20041215

REACTIONS (2)
  - CARDIAC ARREST [None]
  - SUDDEN DEATH [None]
